FAERS Safety Report 5807072-8 (Version None)
Quarter: 2008Q3

REPORT INFORMATION
  Report Type: 
  Country: None (occurrence: None)
  Receive Date: 20080711
  Receipt Date: 20080702
  Transmission Date: 20090109
  Serious: No
  Sender: FDA-Public Use
  Company Number: US-BAYER-200827120NA

PATIENT
  Age: 29 Year
  Sex: Female
  Weight: 101 kg

DRUGS (1)
  1. MIRENA [Suspect]
     Indication: CONTRACEPTION
     Route: 015
     Dates: start: 20071226, end: 20080601

REACTIONS (5)
  - DYSMENORRHOEA [None]
  - INTRA-UTERINE CONTRACEPTIVE DEVICE EXPELLED [None]
  - MENORRHAGIA [None]
  - NO ADVERSE EVENT [None]
  - OVARIAN CYST [None]
